APPROVED DRUG PRODUCT: DIVALPROEX SODIUM
Active Ingredient: DIVALPROEX SODIUM
Strength: EQ 500MG VALPROIC ACID
Dosage Form/Route: TABLET, EXTENDED RELEASE;ORAL
Application: A202419 | Product #002 | TE Code: AB
Applicant: AUROBINDO PHARMA LTD
Approved: Jun 2, 2014 | RLD: No | RS: No | Type: RX